FAERS Safety Report 16166853 (Version 1)
Quarter: 2019Q2

REPORT INFORMATION
  Report Type: Spontaneous
  Country: CA (occurrence: CA)
  Receive Date: 20190408
  Receipt Date: 20190408
  Transmission Date: 20190711
  Serious: Yes (Other)
  Sender: FDA-Public Use
  Company Number: CA-JNJFOC-20190403501

PATIENT
  Age: 78 Year
  Sex: Male

DRUGS (4)
  1. JAKAVI [Suspect]
     Active Substance: RUXOLITINIB
     Indication: POLYCYTHAEMIA VERA
     Route: 048
  2. TYLENOL [Suspect]
     Active Substance: ACETAMINOPHEN
     Indication: PRODUCT USED FOR UNKNOWN INDICATION
     Dosage: 4 DOSAGE FORMS
     Route: 065
  3. JAKAVI [Suspect]
     Active Substance: RUXOLITINIB
     Indication: POLYCYTHAEMIA VERA
     Route: 048
  4. TYLENOL [Suspect]
     Active Substance: ACETAMINOPHEN
     Indication: PRODUCT USED FOR UNKNOWN INDICATION
     Dosage: 3.0 DOSAGE FORMS
     Route: 065

REACTIONS (12)
  - Drug hypersensitivity [Recovering/Resolving]
  - Haemorrhage [Recovering/Resolving]
  - Psoriatic arthropathy [Recovering/Resolving]
  - Abdominal pain [Recovering/Resolving]
  - Influenza [Recovering/Resolving]
  - Weight decreased [Recovering/Resolving]
  - Weight increased [Recovering/Resolving]
  - Splenomegaly [Recovering/Resolving]
  - Gastric disorder [Recovering/Resolving]
  - Contusion [Recovering/Resolving]
  - Increased appetite [Recovering/Resolving]
  - Red blood cell count increased [Recovering/Resolving]
